FAERS Safety Report 19441280 (Version 1)
Quarter: 2021Q2

REPORT INFORMATION
  Report Type: Report from Study
  Country: US (occurrence: US)
  Receive Date: 20210621
  Receipt Date: 20210621
  Transmission Date: 20210717
  Serious: No
  Sender: FDA-Public Use
  Company Number: NVSC2021US131914

PATIENT
  Age: 58 Year
  Sex: Female

DRUGS (1)
  1. ANASTROZOLE. [Suspect]
     Active Substance: ANASTROZOLE
     Indication: BREAST CANCER
     Route: 065
     Dates: start: 201908, end: 20210610

REACTIONS (9)
  - Muscular weakness [Unknown]
  - Drug intolerance [Unknown]
  - Skeletal injury [Unknown]
  - Nausea [Unknown]
  - Arthralgia [Unknown]
  - Bone pain [Unknown]
  - Mobility decreased [Unknown]
  - Osteoporosis [Unknown]
  - Arthritis [Unknown]

NARRATIVE: CASE EVENT DATE: 201908
